FAERS Safety Report 5116106-8 (Version None)
Quarter: 2006Q3

REPORT INFORMATION
  Report Type: 
  Country: None (occurrence: None)
  Receive Date: 20060927
  Receipt Date: 20060505
  Transmission Date: 20061208
  Serious: No
  Sender: FDA-Public Use
  Company Number: US-BRISTOL-MYERS SQUIBB COMPANY-13371380

PATIENT
  Age: 49 Year
  Sex: Male

DRUGS (1)
  1. PERFLUTREN [Suspect]
     Indication: STRESS ECHOCARDIOGRAM
     Route: 041
     Dates: start: 20060505, end: 20060505

REACTIONS (7)
  - ARTHRALGIA [None]
  - ASTHENIA [None]
  - BACK PAIN [None]
  - HYPERHIDROSIS [None]
  - PAIN [None]
  - PAIN IN EXTREMITY [None]
  - PARAESTHESIA [None]
